FAERS Safety Report 4319087-X (Version None)
Quarter: 2004Q1

REPORT INFORMATION
  Report Type: 
  Country: None (occurrence: None)
  Receive Date: 20040318
  Receipt Date: 20040318
  Transmission Date: 20041129
  Serious: Yes (Life-Threatening, Hospitalization)
  Sender: FDA-Public Use
  Company Number: None

PATIENT
  Age: 23 Year
  Sex: Female
  Weight: 45.3597 kg

DRUGS (2)
  1. LAMICTAL [Suspect]
     Indication: BIPOLAR DISORDER
     Dosage: 25 MG 1ST WEEK ORAL, 50 MG 2ND WEEK ORAL
     Route: 048
     Dates: start: 20040223, end: 20040308
  2. LAMICTAL [Suspect]
     Indication: DEPRESSION
     Dosage: 25 MG 1ST WEEK ORAL, 50 MG 2ND WEEK ORAL
     Route: 048
     Dates: start: 20040223, end: 20040308

REACTIONS (7)
  - BACK PAIN [None]
  - BODY TEMPERATURE INCREASED [None]
  - FLUSHING [None]
  - PAIN [None]
  - PRURITUS [None]
  - RASH ERYTHEMATOUS [None]
  - SWELLING FACE [None]
